FAERS Safety Report 5206521-6 (Version None)
Quarter: 2007Q1

REPORT INFORMATION
  Report Type: 
  Country: None (occurrence: None)
  Receive Date: 20070109
  Receipt Date: 20061130
  Transmission Date: 20070707
  Serious: Yes (Death)
  Sender: FDA-Public Use
  Company Number: 578

PATIENT
  Age: 55 Year
  Sex: Female

DRUGS (1)
  1. AMNESTEEM [Suspect]
     Indication: ACNE
     Dosage: 20 MG, PO
     Route: 048
     Dates: start: 20060401, end: 20061101

REACTIONS (1)
  - DEATH [None]
